FAERS Safety Report 9314642 (Version 2)
Quarter: 2013Q4

REPORT INFORMATION
  Report Type: Report from Study
  Country: CA (occurrence: CA)
  Receive Date: 20130529
  Receipt Date: 20131022
  Transmission Date: 20140711
  Serious: Yes (Hospitalization, Other)
  Sender: FDA-Public Use
  Company Number: CA-JNJFOC-20130516846

PATIENT
  Sex: Female
  Weight: 70.9 kg

DRUGS (2)
  1. REMICADE [Suspect]
     Indication: CROHN^S DISEASE
     Dosage: 25TH INFUSION.
     Route: 042
     Dates: start: 20130805
  2. REMICADE [Suspect]
     Indication: CROHN^S DISEASE
     Dosage: ONCE EVERY 6-8 WEEKS, INFUSION NUMBER 25 UNTIL NOW.
     Route: 042

REACTIONS (4)
  - Neoplasm malignant [Unknown]
  - Lung neoplasm [Unknown]
  - Renal neoplasm [Unknown]
  - Hepatic neoplasm [Unknown]
